FAERS Safety Report 20656203 (Version 3)
Quarter: 2024Q2

REPORT INFORMATION
  Report Type: Spontaneous
  Country: US (occurrence: US)
  Receive Date: 20220331
  Receipt Date: 20240425
  Transmission Date: 20240716
  Serious: Yes (Death, Other)
  Sender: FDA-Public Use
  Company Number: US-TEVA-2022-US-2022486

PATIENT
  Age: 64 Year
  Sex: Female
  Weight: 43.54 kg

DRUGS (11)
  1. AMLODIPINE\VALSARTAN [Suspect]
     Active Substance: AMLODIPINE\VALSARTAN
     Indication: Hypertension
     Dosage: DOSAGE TEXT: 10/320 MG
     Route: 048
     Dates: start: 20150601, end: 20160705
  2. ATORVASTATIN [Concomitant]
     Active Substance: ATORVASTATIN
     Indication: Blood cholesterol increased
     Dosage: DOSAGE TEXT: 40MG DAILY
     Route: 048
     Dates: start: 2015, end: 2022
  3. CLONIDINE [Concomitant]
     Active Substance: CLONIDINE
     Indication: Hypertension
     Dosage: DOSAGE TEXT: 0.2 MG DAILY
     Route: 048
     Dates: start: 2015, end: 2019
  4. DULOXETINE [Concomitant]
     Active Substance: DULOXETINE
     Indication: Pain management
     Dosage: DOSAGE TEXT: 30 MG
     Dates: start: 2016, end: 2017
  5. AMLODIPINE BESYLATE [Concomitant]
     Active Substance: AMLODIPINE BESYLATE
     Indication: Hypertension
     Dosage: DOSAGE TEXT: 5MG-10MG DAILY
     Route: 048
     Dates: start: 2015, end: 2022
  6. PROPRANOLOL [Concomitant]
     Active Substance: PROPRANOLOL HYDROCHLORIDE
     Indication: Hypertension
     Dosage: DOSAGE TEXT: 20MG DAILY
     Route: 048
     Dates: start: 2019, end: 2019
  7. LOSARTAN [Concomitant]
     Active Substance: LOSARTAN
     Indication: Hypertension
     Dosage: DOSAGE TEXT: 50MG DAILY
     Route: 048
     Dates: start: 2019, end: 2022
  8. METFORMIN [Concomitant]
     Active Substance: METFORMIN HYDROCHLORIDE
     Indication: Diabetes mellitus
     Dosage: DOSAGE TEXT: 500 MG DAILY
     Route: 048
     Dates: start: 2019, end: 2022
  9. VALSARTAN [Suspect]
     Active Substance: VALSARTAN
     Indication: Hypertension
     Route: 048
     Dates: start: 20160620, end: 20180621
  10. ACETAMINOPHEN\HYDROCODONE [Concomitant]
     Active Substance: ACETAMINOPHEN\HYDROCODONE
     Indication: Pain management
     Dosage: TIME INTERVAL: AS NECESSARY: DOSAGE TEXT: 10/320 MG AS NEEDED
     Route: 048
     Dates: start: 2010, end: 2016
  11. JANUVIA [Concomitant]
     Active Substance: SITAGLIPTIN PHOSPHATE
     Indication: Diabetes mellitus
     Dosage: DOSAGE TEXT: 50MG DAILY
     Route: 048
     Dates: start: 2016, end: 2019

REACTIONS (3)
  - Gastric cancer stage IV [Fatal]
  - Hepatic cancer metastatic [Unknown]
  - Small intestine adenocarcinoma [Unknown]
